FAERS Safety Report 16804252 (Version 1)
Quarter: 2019Q3

REPORT INFORMATION
  Report Type: Spontaneous
  Country: JP (occurrence: JP)
  Receive Date: 20190913
  Receipt Date: 20190913
  Transmission Date: 20191005
  Serious: Yes (Hospitalization)
  Sender: FDA-Public Use
  Company Number: JP-ACCORD-154828

PATIENT
  Age: 70 Year
  Sex: Male

DRUGS (1)
  1. GLIMEPIRIDE. [Suspect]
     Active Substance: GLIMEPIRIDE
     Indication: PRODUCT USED FOR UNKNOWN INDICATION
     Dosage: MISPRESCRIPTION OF GLIMEPIRIDE 4 MG
     Route: 048

REACTIONS (2)
  - Product prescribing error [Unknown]
  - Hypoglycaemia [Recovering/Resolving]
